FAERS Safety Report 25079475 (Version 2)
Quarter: 2025Q1

REPORT INFORMATION
  Report Type: Spontaneous
  Country: ZA (occurrence: ZA)
  Receive Date: 20250314
  Receipt Date: 20250317
  Transmission Date: 20250408
  Serious: Yes (Hospitalization)
  Sender: PFIZER
  Company Number: ZA-MLMSERVICE-20250303-PI435071-00271-1

PATIENT
  Age: 26 Year
  Sex: Female

DRUGS (18)
  1. PIPERACILLIN SODIUM\TAZOBACTAM SODIUM [Suspect]
     Active Substance: PIPERACILLIN SODIUM\TAZOBACTAM SODIUM
     Indication: Evidence based treatment
     Dosage: 4.5 G, 3X/DAY
     Route: 042
     Dates: start: 2023, end: 2023
  2. PIPERACILLIN SODIUM\TAZOBACTAM SODIUM [Suspect]
     Active Substance: PIPERACILLIN SODIUM\TAZOBACTAM SODIUM
     Indication: Antibiotic therapy
  3. PIPERACILLIN SODIUM\TAZOBACTAM SODIUM [Suspect]
     Active Substance: PIPERACILLIN SODIUM\TAZOBACTAM SODIUM
     Indication: Pneumonia
  4. AMIKACIN [Suspect]
     Active Substance: AMIKACIN
     Indication: Evidence based treatment
     Dosage: 750 MG, DAILY
     Route: 042
     Dates: start: 2023, end: 2023
  5. AMIKACIN [Suspect]
     Active Substance: AMIKACIN
     Indication: Antibiotic therapy
  6. AMIKACIN [Suspect]
     Active Substance: AMIKACIN
     Indication: Pneumonia
  7. CEFTRIAXONE [Suspect]
     Active Substance: CEFTRIAXONE
     Indication: Evidence based treatment
     Dosage: 1 G, DAILY
     Route: 042
     Dates: start: 2023, end: 2023
  8. CEFTRIAXONE [Suspect]
     Active Substance: CEFTRIAXONE
     Indication: Antibiotic therapy
     Dosage: 2 G, DAILY
     Dates: start: 202401
  9. CEFTRIAXONE [Suspect]
     Active Substance: CEFTRIAXONE
     Indication: Pneumonia
  10. PREDNISONE [Suspect]
     Active Substance: PREDNISONE
     Indication: Organising pneumonia
     Route: 048
     Dates: start: 20231222, end: 2024
  11. ERTAPENEM [Suspect]
     Active Substance: ERTAPENEM
     Indication: Nosocomial infection
     Dosage: 1 G, DAILY
     Route: 042
     Dates: start: 202401
  12. RIFAMPIN [Suspect]
     Active Substance: RIFAMPIN
     Indication: Antibiotic therapy
     Dosage: 600 MG, 2X/DAY
     Dates: start: 202401
  13. RIFAMPIN [Suspect]
     Active Substance: RIFAMPIN
     Indication: Evidence based treatment
  14. RIFAMPIN [Suspect]
     Active Substance: RIFAMPIN
     Indication: Endocarditis
  15. RIFAMPIN [Suspect]
     Active Substance: RIFAMPIN
     Indication: Lung abscess
  16. VANCOMYCIN [Concomitant]
     Active Substance: VANCOMYCIN
     Indication: Nosocomial infection
     Route: 042
     Dates: start: 202401, end: 202401
  17. VANCOMYCIN [Concomitant]
     Active Substance: VANCOMYCIN
     Indication: Endocarditis
  18. VANCOMYCIN [Concomitant]
     Active Substance: VANCOMYCIN
     Indication: Lung abscess

REACTIONS (5)
  - Fusarium infection [Recovered/Resolved]
  - Prosthetic valve endocarditis [Recovered/Resolved]
  - Fungal endocarditis [Recovered/Resolved]
  - Lung abscess [Recovered/Resolved]
  - Infectious pleural effusion [Recovered/Resolved]

NARRATIVE: CASE EVENT DATE: 20240101
